FAERS Safety Report 25228724 (Version 1)
Quarter: 2025Q2

REPORT INFORMATION
  Report Type: Spontaneous
  Country: FR (occurrence: FR)
  Receive Date: 20250423
  Receipt Date: 20250423
  Transmission Date: 20250717
  Serious: Yes (Hospitalization)
  Sender: AUROBINDO
  Company Number: FR-AUROBINDO-AUR-APL-2025-020581

PATIENT
  Age: 6 Year
  Sex: Male

DRUGS (17)
  1. RISPERIDONE [Suspect]
     Active Substance: RISPERIDONE
     Indication: Intellectual disability
     Route: 065
  2. RISPERIDONE [Suspect]
     Active Substance: RISPERIDONE
     Indication: Neurodevelopmental disorder
  3. METHYLPHENIDATE [Suspect]
     Active Substance: METHYLPHENIDATE
     Indication: Intellectual disability
     Route: 065
  4. METHYLPHENIDATE [Suspect]
     Active Substance: METHYLPHENIDATE
     Indication: Neurodevelopmental disorder
  5. MELATONIN [Suspect]
     Active Substance: MELATONIN
     Indication: Intellectual disability
     Route: 065
  6. MELATONIN [Suspect]
     Active Substance: MELATONIN
     Indication: Neurodevelopmental disorder
  7. HYDROXYZINE [Suspect]
     Active Substance: HYDROXYZINE HYDROCHLORIDE
     Indication: Intellectual disability
     Route: 065
  8. HYDROXYZINE [Suspect]
     Active Substance: HYDROXYZINE HYDROCHLORIDE
     Indication: Neurodevelopmental disorder
  9. CYAMEMAZINE [Suspect]
     Active Substance: CYAMEMAZINE
     Indication: Intellectual disability
     Route: 065
  10. CYAMEMAZINE [Suspect]
     Active Substance: CYAMEMAZINE
     Indication: Neurodevelopmental disorder
  11. ARIPIPRAZOLE [Suspect]
     Active Substance: ARIPIPRAZOLE
     Indication: Intellectual disability
     Route: 065
  12. TIAPRIDE [Suspect]
     Active Substance: TIAPRIDE
     Indication: Intellectual disability
     Route: 065
  13. TIAPRIDE [Suspect]
     Active Substance: TIAPRIDE
     Indication: Neurodevelopmental disorder
  14. DESMOPRESSIN [Suspect]
     Active Substance: DESMOPRESSIN
     Indication: Intellectual disability
     Route: 065
  15. DESMOPRESSIN [Suspect]
     Active Substance: DESMOPRESSIN
     Indication: Neurodevelopmental disorder
  16. CLONIDINE [Concomitant]
     Active Substance: CLONIDINE
     Indication: Intellectual disability
     Dosage: 0.075 MILLIGRAM, ONCE A DAY
     Route: 065
  17. CLONIDINE [Concomitant]
     Active Substance: CLONIDINE
     Indication: Neurodevelopmental disorder

REACTIONS (1)
  - Drug ineffective [Unknown]
